FAERS Safety Report 24346724 (Version 1)
Quarter: 2024Q3

REPORT INFORMATION
  Report Type: Spontaneous
  Country: NL (occurrence: NL)
  Receive Date: 20240921
  Receipt Date: 20240921
  Transmission Date: 20241016
  Serious: Yes (Other)
  Sender: ROCHE
  Company Number: NL-002147023-NVSC2024NL184327

PATIENT
  Age: 66 Year
  Sex: Female

DRUGS (1)
  1. XOLAIR [Suspect]
     Active Substance: OMALIZUMAB
     Indication: Chronic spontaneous urticaria
     Dosage: UNK (ROUTE: INJECTION)
     Route: 065
     Dates: start: 202103

REACTIONS (3)
  - Chronic spontaneous urticaria [Unknown]
  - Angioedema [Unknown]
  - Therapeutic product effect incomplete [Unknown]
